FAERS Safety Report 16854953 (Version 1)
Quarter: 2019Q3

REPORT INFORMATION
  Report Type: Spontaneous
  Country: US (occurrence: US)
  Receive Date: 20190805
  Receipt Date: 20190805
  Transmission Date: 20191005
  Serious: Yes (Hospitalization)
  Sender: FDA-Public Use
  Company Number: None

PATIENT

DRUGS (2)
  1. POTASSIUM [Suspect]
     Active Substance: POTASSIUM
  2. SPIRONOLACTONE. [Suspect]
     Active Substance: SPIRONOLACTONE

REACTIONS (1)
  - Hypokalaemia [None]
